FAERS Safety Report 26185918 (Version 1)
Quarter: 2025Q4

REPORT INFORMATION
  Report Type: Spontaneous
  Country: US (occurrence: US)
  Receive Date: 20251222
  Receipt Date: 20251222
  Transmission Date: 20260117
  Serious: No
  Sender: UROGEN PHARMA
  Company Number: US-UROGEN PHARMA LTD.-2025-UGN-000214

PATIENT

DRUGS (2)
  1. ZUSDURI [Suspect]
     Active Substance: MITOMYCIN
     Indication: Product used for unknown indication
     Dosage: UNK, (INSTILLATION)
     Dates: start: 202510, end: 202510
  2. ZUSDURI [Suspect]
     Active Substance: MITOMYCIN
     Dosage: UNK, (INSTILLATION) RECEIVED APPROXIMATELY 55 1/2 ML
     Dates: start: 20251029, end: 20251029

REACTIONS (2)
  - Underdose [Unknown]
  - Complication associated with device [Unknown]

NARRATIVE: CASE EVENT DATE: 20251029
